FAERS Safety Report 10554007 (Version 1)
Quarter: 2014Q4

REPORT INFORMATION
  Report Type: Spontaneous
  Country: US (occurrence: None)
  Receive Date: 20141028
  Receipt Date: 20141028
  Transmission Date: 20150529
  Serious: Yes (Other)
  Sender: FDA-Public Use
  Company Number: HAU201410-000004

PATIENT

DRUGS (2)
  1. LEVONORGESTREL AND ETHINYL ESTRADIOL [Suspect]
     Active Substance: ETHINYL ESTRADIOL\LEVONORGESTREL
  2. NORGESTIMATE [Suspect]
     Active Substance: NORGESTIMATE

REACTIONS (2)
  - Drug-induced liver injury [None]
  - Hepatotoxicity [None]
